APPROVED DRUG PRODUCT: AMPICILLIN SODIUM
Active Ingredient: AMPICILLIN SODIUM
Strength: EQ 125MG BASE/VIAL
Dosage Form/Route: INJECTABLE;INJECTION
Application: A062772 | Product #005
Applicant: HQ SPECIALTY PHARMA CORP
Approved: Apr 15, 1993 | RLD: No | RS: No | Type: DISCN